FAERS Safety Report 9276411 (Version 1)
Quarter: 2013Q2

REPORT INFORMATION
  Report Type: Report from Study
  Country: AR (occurrence: AR)
  Receive Date: 20130507
  Receipt Date: 20130507
  Transmission Date: 20140414
  Serious: Yes (Other)
  Sender: FDA-Public Use
  Company Number: PHHY2013AR040577

PATIENT
  Sex: Female

DRUGS (1)
  1. ACLASTA [Suspect]
     Indication: OSTEOPOROSIS
     Dosage: ONCE ANNUALLY
     Route: 042
     Dates: start: 2009

REACTIONS (5)
  - Cataract [Recovering/Resolving]
  - Cystoid macular oedema [Recovering/Resolving]
  - Visual acuity reduced [Recovering/Resolving]
  - Eye pain [Recovering/Resolving]
  - Aphasia [Recovering/Resolving]
